FAERS Safety Report 7490052-7 (Version None)
Quarter: 2011Q2

REPORT INFORMATION
  Report Type: 
  Country: None (occurrence: None)
  Receive Date: 20110512
  Receipt Date: 20110428
  Transmission Date: 20111010
  Serious: Yes (Hospitalization)
  Sender: FDA-Public Use
  Company Number: DSJ-2011-08366

PATIENT
  Age: 76 Year
  Sex: Male
  Weight: 65 kg

DRUGS (6)
  1. CELECOXIB [Suspect]
     Indication: OSTEOARTHRITIS
     Dosage: 200 MG (100 MG, 2 IN 1 D), PER ORAL, 200 MG (100 MG, 2 IN 1 D), PER ORAL
     Route: 048
     Dates: start: 20081020, end: 20090721
  2. CELECOXIB [Suspect]
     Indication: OSTEOARTHRITIS
     Dosage: 200 MG (100 MG, 2 IN 1 D), PER ORAL, 200 MG (100 MG, 2 IN 1 D), PER ORAL
     Route: 048
     Dates: start: 20091215, end: 20100114
  3. LOXOPROFEN (LOXOPROFEN) (LOXOPROFEN) [Concomitant]
  4. OLMESARTAN MEDOXOMIL [Suspect]
     Indication: PRODUCT USED FOR UNKNOWN INDICATION
     Dosage: 1 DOSAGE FORMS (1 DOSAGE FORMS, 1 IN 1 D), PER ORAL
     Route: 048
     Dates: start: 20080221
  5. NICARDIPINE HYDROCHLORIDE [Suspect]
     Indication: PRODUCT USED FOR UNKNOWN INDICATION
     Dosage: 1 DOSAGE FORMS (1 DOSAGE FORMS, 1 IN 1 D), PER ORAL
     Route: 048
     Dates: start: 20080225
  6. ALLOPURINOL [Suspect]
     Indication: PRODUCT USED FOR UNKNOWN INDICATION
     Dosage: 1 DOSAGE FORMS (1 DOSAGE FORMS, 1 IN 1 D) PER ORAL
     Route: 048
     Dates: start: 20090303

REACTIONS (1)
  - CEREBRAL INFARCTION [None]
